FAERS Safety Report 17570952 (Version 1)
Quarter: 2020Q1

REPORT INFORMATION
  Report Type: Spontaneous
  Country: US (occurrence: US)
  Receive Date: 20200323
  Receipt Date: 20200323
  Transmission Date: 20200409
  Serious: No
  Sender: FDA-Public Use
  Company Number: US-PFIZER INC-2020121481

PATIENT
  Age: 41 Year
  Sex: Female
  Weight: 81.8 kg

DRUGS (3)
  1. VANCOMYCIN [Concomitant]
     Active Substance: VANCOMYCIN
     Dosage: 1250 MG, UNK
  2. ZOSYN [Suspect]
     Active Substance: PIPERACILLIN SODIUM\TAZOBACTAM SODIUM
     Dosage: 3.375 G, UNK
     Dates: end: 20200229
  3. VANCOMYCIN [Concomitant]
     Active Substance: VANCOMYCIN
     Dosage: 1500 MG, UNK
     Route: 042

REACTIONS (3)
  - Erythema [Unknown]
  - Rash macular [Unknown]
  - Drug hypersensitivity [Unknown]
